FAERS Safety Report 8909920 (Version 2)
Quarter: 2012Q4

REPORT INFORMATION
  Report Type: 
  Country: FR (occurrence: FR)
  Receive Date: 20121115
  Receipt Date: 20121126
  Transmission Date: 20130627
  Serious: Yes (Hospitalization)
  Sender: FDA-Public Use
  Company Number: FR-PFIZER INC-2012283525

PATIENT
  Age: 71 Year
  Sex: Female

DRUGS (16)
  1. XANAX [Suspect]
     Dosage: 2 mg (four dosage forms of 0.5 mg tablet) , daily
     Route: 048
  2. HYDROCHLOROTHIAZIDE/OLMESARTAN MEDOXOMIL [Suspect]
     Indication: HYPERTENSION ARTERIAL
     Dosage: 1 DF (20 mg/12.5 mg), daily
     Route: 048
     Dates: end: 201210
  3. TERCIAN [Suspect]
     Dosage: 12.5 mg (half a dosage form of 25 mg tablet), daily
     Dates: end: 201210
  4. DIAMICRON [Concomitant]
     Dosage: 4 DF, in the morning
  5. GLUCOPHAGE [Concomitant]
     Dosage: 1 DF, at noon
  6. VENLAFAXINE ARROW [Concomitant]
     Dosage: 1 DF, in the evening
  7. KARDEGIC [Concomitant]
     Dosage: 1 DF, at noon
  8. ZOLPIDEM [Concomitant]
     Dosage: 2 DF, in the evening
  9. SEROPLEX [Concomitant]
     Dosage: 2 DF, in the evening
  10. CRESTOR [Concomitant]
     Dosage: 1 DF, in the morning
  11. EUCREAS [Concomitant]
     Dosage: 1 DF, morning and evening
  12. METEOXANE [Concomitant]
     Dosage: 2 DF, 3x/day
  13. SPASFON [Concomitant]
     Dosage: 2 DF, 3x/day
  14. PANTOPRAZOLE [Concomitant]
     Dosage: 1 DF, in the evening
  15. DAFALGAN CODEINE [Concomitant]
     Dosage: 2 DF, 3x/day
  16. ARTANE [Concomitant]
     Dosage: 1 DF, 3x/day, as needed

REACTIONS (2)
  - Malaise [Recovering/Resolving]
  - Presyncope [Recovering/Resolving]
